FAERS Safety Report 11573898 (Version 2)
Quarter: 2015Q4

REPORT INFORMATION
  Report Type: Spontaneous
  Country: US (occurrence: US)
  Receive Date: 20150930
  Receipt Date: 20151013
  Transmission Date: 20160304
  Serious: No
  Sender: FDA-Public Use
  Company Number: US-AMGEN-USASP2015099426

PATIENT
  Age: 31 Year
  Sex: Female

DRUGS (2)
  1. ENBREL [Suspect]
     Active Substance: ETANERCEPT
     Indication: PSORIASIS
     Dosage: 50 MG, ONCE A WEEK
     Route: 065
     Dates: start: 2015
  2. ENBREL [Suspect]
     Active Substance: ETANERCEPT
     Indication: PSORIATIC ARTHROPATHY

REACTIONS (8)
  - Device issue [Unknown]
  - Incorrect product storage [Unknown]
  - Injection site swelling [Unknown]
  - Injury associated with device [Unknown]
  - Injection site erythema [Unknown]
  - Needle issue [Unknown]
  - Extra dose administered [Unknown]
  - Injection site irritation [Unknown]

NARRATIVE: CASE EVENT DATE: 20150924
